FAERS Safety Report 19781123 (Version 1)
Quarter: 2021Q3

REPORT INFORMATION
  Report Type: Spontaneous
  Country: US (occurrence: US)
  Receive Date: 20210903
  Receipt Date: 20210903
  Transmission Date: 20211014
  Serious: Yes (Other)
  Sender: FDA-Public Use
  Company Number: US-ABBVIE-21K-163-4060880-00

PATIENT
  Sex: Female

DRUGS (6)
  1. CYTOMEL [Suspect]
     Active Substance: LIOTHYRONINE SODIUM
     Route: 065
     Dates: start: 1978
  2. CYTOMEL [Suspect]
     Active Substance: LIOTHYRONINE SODIUM
     Indication: PRODUCT USED FOR UNKNOWN INDICATION
     Route: 065
     Dates: start: 1966
  3. SYNTHROID [Suspect]
     Active Substance: LEVOTHYROXINE SODIUM
     Indication: PRODUCT USED FOR UNKNOWN INDICATION
     Route: 048
     Dates: start: 1964, end: 1966
  4. CYTOMEL [Suspect]
     Active Substance: LIOTHYRONINE SODIUM
     Route: 065
     Dates: end: 1978
  5. CYTOMEL [Suspect]
     Active Substance: LIOTHYRONINE SODIUM
     Route: 065
  6. TIKOSYN [Concomitant]
     Active Substance: DOFETILIDE
     Indication: PRODUCT USED FOR UNKNOWN INDICATION
     Dates: start: 1991

REACTIONS (6)
  - Drug ineffective [Unknown]
  - Thyroid disorder [Unknown]
  - Dysphonia [Recovered/Resolved]
  - Liposarcoma [Unknown]
  - Memory impairment [Unknown]
  - Weight increased [Unknown]
